FAERS Safety Report 19085392 (Version 5)
Quarter: 2021Q2

REPORT INFORMATION
  Report Type: Report from Study
  Country: US (occurrence: US)
  Receive Date: 20210401
  Receipt Date: 20210609
  Transmission Date: 20210717
  Serious: Yes (Hospitalization)
  Sender: FDA-Public Use
  Company Number: US-SEATTLE GENETICS-2021SGN01594

PATIENT
  Sex: Female

DRUGS (4)
  1. TUCATINIB [Suspect]
     Active Substance: TUCATINIB
     Indication: BREAST CANCER FEMALE
     Dosage: UNK
  2. OMEPRAZOLE. [Concomitant]
     Active Substance: OMEPRAZOLE
  3. SINGULAIR [Concomitant]
     Active Substance: MONTELUKAST SODIUM
  4. HERCEPTIN [Suspect]
     Active Substance: TRASTUZUMAB
     Indication: PRODUCT USED FOR UNKNOWN INDICATION

REACTIONS (13)
  - Oedema [Unknown]
  - Decreased appetite [Unknown]
  - Dry mouth [Unknown]
  - Feeling abnormal [Unknown]
  - Transfusion [Unknown]
  - Weight increased [Unknown]
  - Rhinorrhoea [Unknown]
  - Peripheral swelling [Unknown]
  - Constipation [Unknown]
  - Haemoglobin decreased [Unknown]
  - Fluid retention [Unknown]
  - Metastases to chest wall [Unknown]
  - Fatigue [Unknown]
